FAERS Safety Report 4507453-9 (Version None)
Quarter: 2004Q4

REPORT INFORMATION
  Report Type: 
  Country: None (occurrence: None)
  Receive Date: 20041118
  Receipt Date: 20041106
  Transmission Date: 20050328
  Serious: Yes (Hospitalization)
  Sender: FDA-Public Use
  Company Number: US014265

PATIENT
  Age: 40 Year
  Sex: Female
  Weight: 61.2356 kg

DRUGS (4)
  1. PROVIGIL [Suspect]
     Indication: FATIGUE
     Dosage: 200 MG QE ORAL
     Route: 048
     Dates: start: 20040801, end: 20040801
  2. PROVIGIL [Suspect]
     Indication: MULTIPLE SCLEROSIS
     Dosage: 200 MG QE ORAL
     Route: 048
     Dates: start: 20040801, end: 20040801
  3. COPAXONE [Concomitant]
  4. DITROPAN XL [Concomitant]

REACTIONS (7)
  - ASTHMA [None]
  - ATRIAL TACHYCARDIA [None]
  - BRADYCARDIA [None]
  - CHEST PAIN [None]
  - PALPITATIONS [None]
  - SUPRAVENTRICULAR EXTRASYSTOLES [None]
  - VENTRICULAR EXTRASYSTOLES [None]
